FAERS Safety Report 5595000-2 (Version None)
Quarter: 2007Q4

REPORT INFORMATION
  Report Type: 
  Country: None (occurrence: None)
  Receive Date: 20071218
  Receipt Date: 20070320
  Transmission Date: 20080405
  Serious: Yes (Hospitalization, Disabling, Other)
  Sender: FDA-Public Use
  Company Number: 2007023038

PATIENT
  Age: 64 Year
  Sex: Male
  Weight: 88.9 kg

DRUGS (1)
  1. BEXTRA [Suspect]
     Indication: ARTHRITIS
     Dosage: 20 MG, ONCE OR TWICE A DAY
     Dates: start: 20031001

REACTIONS (1)
  - MYOCARDIAL INFARCTION [None]
